FAERS Safety Report 11148437 (Version 1)
Quarter: 2015Q2

REPORT INFORMATION
  Report Type: Spontaneous
  Country: US (occurrence: US)
  Receive Date: 20150529
  Receipt Date: 20150529
  Transmission Date: 20150821
  Serious: Yes (Death, Other)
  Sender: FDA-Public Use
  Company Number: US-CIPLA LTD.-2015US04110

PATIENT

DRUGS (7)
  1. GEMCITABINE [Suspect]
     Active Substance: GEMCITABINE\GEMCITABINE HYDROCHLORIDE
     Dosage: 450 MG/M2, DAYS 1 AND 8 EVERY 3 WEEKS
     Route: 065
  2. BEVACIZUMAB [Suspect]
     Active Substance: BEVACIZUMAB
     Dosage: 5MG/KG, DAY 1 EVERY 3 WEEKS
  3. TRAMETINIB [Suspect]
     Active Substance: TRAMETINIB
     Indication: DISEASE PROGRESSION
     Dosage: 2 WEEK COURSES
     Route: 065
  4. DOCETAXEL. [Suspect]
     Active Substance: DOCETAXEL
     Indication: DISEASE PROGRESSION
     Dosage: 75MG/M2, DAY 8 EVERY 3 WEEKS
     Route: 065
  5. BEVACIZUMAB [Suspect]
     Active Substance: BEVACIZUMAB
     Indication: DISEASE PROGRESSION
     Dosage: 15MG/KG, DAY 1 EVERY 3 WEEKS
     Route: 065
  6. GEMCITABINE [Suspect]
     Active Substance: GEMCITABINE\GEMCITABINE HYDROCHLORIDE
     Indication: DISEASE PROGRESSION
     Dosage: 900 MG/M2, DAYS 1 AND 8 EVERY 3 WEEKS
     Route: 065
  7. SIROLIMUS. [Suspect]
     Active Substance: SIROLIMUS
     Indication: DISEASE PROGRESSION
     Dosage: 2 WEEK COURSES
     Route: 065

REACTIONS (7)
  - Abdominal distension [Unknown]
  - Lymphoedema [Unknown]
  - Pleural effusion [Unknown]
  - K-ras gene mutation [Unknown]
  - Disease progression [Fatal]
  - Hepatomegaly [Unknown]
  - Neuropathy peripheral [Unknown]
